FAERS Safety Report 7526641-0 (Version None)
Quarter: 2011Q2

REPORT INFORMATION
  Report Type: 
  Country: None (occurrence: None)
  Receive Date: 20110606
  Receipt Date: 20110520
  Transmission Date: 20111010
  Serious: Yes (Death, Hospitalization)
  Sender: FDA-Public Use
  Company Number: JP-NOVOPROD-323923

PATIENT
  Age: 78 Year
  Sex: Male
  Weight: 44 kg

DRUGS (12)
  1. BLOOD TRANSFUSION, AUXILIARY PRODUCTS [Concomitant]
  2. HALOPERIDOL [Concomitant]
     Dosage: 5 MG, QD
     Route: 042
     Dates: start: 20110221, end: 20110222
  3. ROZECLART                          /00522202/ [Concomitant]
     Dosage: 2 G, QD
     Route: 042
     Dates: start: 20110220, end: 20110223
  4. FACTOR XIII [Concomitant]
     Indication: PRODUCT USED FOR UNKNOWN INDICATION
  5. LEPETAN [Concomitant]
     Dosage: 0.2 MG, QD
     Route: 042
     Dates: start: 20110220, end: 20110225
  6. VITAMEDIN                          /00176001/ [Concomitant]
     Dosage: 1 A
     Route: 042
     Dates: start: 20110221, end: 20110310
  7. ASPIRIN [Concomitant]
     Route: 048
  8. FAMOTIDINE [Concomitant]
     Dosage: 20 MG, QD
     Route: 042
     Dates: start: 20110219, end: 20110221
  9. TRANSAMIN [Concomitant]
     Dosage: 1000 MG, QD
     Route: 042
     Dates: start: 20110220, end: 20110222
  10. NOVOSEVEN [Suspect]
     Indication: ACQUIRED HAEMOPHILIA
     Dosage: 5MG X 14 TIMES
     Route: 042
     Dates: start: 20110221, end: 20110223
  11. OMEPRAZOLE [Concomitant]
     Dosage: 20 MG, QD
     Route: 042
     Dates: start: 20110222, end: 20110310
  12. ADONA                              /00056903/ [Concomitant]
     Dosage: 50 MG, QD
     Route: 042
     Dates: start: 20110220, end: 20110222

REACTIONS (7)
  - CARDIAC ARREST [None]
  - RENAL IMPAIRMENT [None]
  - THROMBOSIS [None]
  - PLATELET COUNT DECREASED [None]
  - HEPATIC FUNCTION ABNORMAL [None]
  - CREATININE RENAL CLEARANCE ABNORMAL [None]
  - ACUTE MYOCARDIAL INFARCTION [None]
